FAERS Safety Report 18122237 (Version 10)
Quarter: 2021Q1

REPORT INFORMATION
  Report Type: Spontaneous
  Country: US (occurrence: US)
  Receive Date: 20200807
  Receipt Date: 20210318
  Transmission Date: 20210419
  Serious: Yes (Hospitalization, Other)
  Sender: FDA-Public Use
  Company Number: US-DSJP-DSU-2020-122624

PATIENT
  Age: 56 Year
  Sex: Male

DRUGS (2)
  1. TURALIO [Suspect]
     Active Substance: PEXIDARTINIB HYDROCHLORIDE
     Indication: BONE GIANT CELL TUMOUR BENIGN
     Dosage: 400 MG, QAM
     Route: 048
     Dates: start: 20200724
  2. TURALIO [Suspect]
     Active Substance: PEXIDARTINIB HYDROCHLORIDE
     Dosage: 400 MG, QD
     Route: 048
     Dates: end: 20200827

REACTIONS (10)
  - Fatigue [Not Recovered/Not Resolved]
  - Hair colour changes [Not Recovered/Not Resolved]
  - Bone pain [Unknown]
  - Lymphoma [Not Recovered/Not Resolved]
  - Off label use [Unknown]
  - Pyrexia [Recovered/Resolved]
  - Product dose omission issue [Not Recovered/Not Resolved]
  - Mood altered [Not Recovered/Not Resolved]
  - Neutrophil count decreased [Recovered/Resolved]
  - Platelet count decreased [Not Recovered/Not Resolved]

NARRATIVE: CASE EVENT DATE: 2020
